FAERS Safety Report 4392089-3 (Version None)
Quarter: 2004Q3

REPORT INFORMATION
  Report Type: 
  Country: None (occurrence: None)
  Receive Date: 20040702
  Receipt Date: 20040702
  Transmission Date: 20050211
  Serious: Yes (Hospitalization, Other)
  Sender: FDA-Public Use
  Company Number: None

PATIENT
  Age: 51 Year
  Sex: Male
  Weight: 106.7 kg

DRUGS (9)
  1. INTEGRILIN [Suspect]
     Indication: ANTIPLATELET THERAPY
     Dosage: 2( 95ML BOLUSES) 17ML/HR IV
     Route: 042
     Dates: start: 20040507, end: 20040508
  2. MIDAZOLAM HCL [Concomitant]
  3. FENTANYL [Concomitant]
  4. LIDOCAINE [Concomitant]
  5. NITROGLYCERIN [Concomitant]
  6. CEFAZOLIN [Concomitant]
  7. ASPIRIN [Concomitant]
  8. PEPCID [Concomitant]
  9. CLOPIDOGREL [Concomitant]

REACTIONS (2)
  - ECCHYMOSIS [None]
  - POST PROCEDURAL COMPLICATION [None]
